FAERS Safety Report 8588578-8 (Version None)
Quarter: 2012Q3

REPORT INFORMATION
  Report Type: 
  Country: None (occurrence: None)
  Receive Date: 20120813
  Receipt Date: 20120802
  Transmission Date: 20120928
  Serious: Yes (Other)
  Sender: FDA-Public Use
  Company Number: JP-VERTEX PHARMACEUTICALS INC.-AE-2012-011252

PATIENT
  Age: 58 Year
  Sex: Male

DRUGS (4)
  1. TELAVIC (TELAPREVIR) [Suspect]
     Route: 048
     Dates: start: 20120802
  2. REBETOL [Concomitant]
     Route: 048
     Dates: start: 20120618, end: 20120802
  3. PEG-INTRON [Concomitant]
     Route: 058
     Dates: start: 20120618, end: 20120802
  4. TELAVIC (TELAPREVIR) [Suspect]
     Route: 048
     Dates: start: 20120718

REACTIONS (2)
  - RETINOPATHY [None]
  - HAEMATOCHEZIA [None]
